FAERS Safety Report 14758042 (Version 3)
Quarter: 2018Q2

REPORT INFORMATION
  Report Type: Spontaneous
  Country: GB (occurrence: GB)
  Receive Date: 20180413
  Receipt Date: 20180507
  Transmission Date: 20180711
  Serious: Yes (Other)
  Sender: FDA-Public Use
  Company Number: GB-GLAXOSMITHKLINE-GB2018GSK062297

PATIENT
  Sex: Male
  Weight: 82.5 kg

DRUGS (2)
  1. EPIPEN (GABAPENTIN) [Concomitant]
     Indication: PRODUCT USED FOR UNKNOWN INDICATION
     Dosage: UNK
  2. ROPINIROLE. [Suspect]
     Active Substance: ROPINIROLE
     Indication: RESTLESS LEGS SYNDROME
     Dosage: 5 DF, 1D
     Route: 048
     Dates: start: 20091104

REACTIONS (11)
  - Hallucination [Unknown]
  - Erectile dysfunction [Unknown]
  - Libido disorder [Unknown]
  - Therapeutic response unexpected [Unknown]
  - Nausea [Unknown]
  - Impaired quality of life [Unknown]
  - Drug dependence [Unknown]
  - Syncope [Unknown]
  - Malaise [Unknown]
  - Nightmare [Unknown]
  - Gambling disorder [Unknown]
